FAERS Safety Report 9052719 (Version 1)
Quarter: 2013Q1

REPORT INFORMATION
  Report Type: Spontaneous
  Country: CH (occurrence: CH)
  Receive Date: 20130207
  Receipt Date: 20130207
  Transmission Date: 20140127
  Serious: Yes (Death, Life-Threatening, Hospitalization)
  Sender: FDA-Public Use
  Company Number: CH-ROCHE-1186382

PATIENT
  Age: 63 Year
  Sex: Male
  Weight: 55 kg

DRUGS (12)
  1. PEGASYS [Suspect]
     Indication: HEPATITIS C
     Route: 058
     Dates: start: 20120613, end: 20121010
  2. COPEGUS [Suspect]
     Indication: HEPATITIS C
     Route: 048
     Dates: start: 20120513, end: 20121010
  3. VICTRELIS [Suspect]
     Indication: HEPATITIS C
     Route: 048
     Dates: start: 20120513, end: 20121010
  4. PROGRAF [Suspect]
     Indication: IMMUNOSUPPRESSION
     Route: 048
  5. NEXIUM [Concomitant]
  6. XANAX [Concomitant]
     Route: 065
  7. ZYRTEC [Concomitant]
  8. DAFALGAN [Concomitant]
  9. TRAMUNDIN [Concomitant]
  10. LEVETIRACETAM [Concomitant]
     Route: 065
  11. JANUVIA [Concomitant]
     Route: 065
  12. NOVONORM [Concomitant]
     Route: 065

REACTIONS (5)
  - Infection [Fatal]
  - Liver abscess [Fatal]
  - Sepsis [Fatal]
  - Multi-organ failure [Fatal]
  - Biliary tract disorder [Fatal]
